FAERS Safety Report 7334089-7 (Version None)
Quarter: 2011Q1

REPORT INFORMATION
  Report Type: 
  Country: None (occurrence: None)
  Receive Date: 20110307
  Receipt Date: 20110301
  Transmission Date: 20110831
  Serious: Yes (Life-Threatening)
  Sender: FDA-Public Use
  Company Number: US-BAYER-2011-020037

PATIENT
  Sex: Female

DRUGS (3)
  1. OCELLA [Suspect]
  2. YAZ [Suspect]
  3. YASMIN [Suspect]

REACTIONS (6)
  - INJURY [None]
  - GALLBLADDER DISORDER [None]
  - PAIN [None]
  - ANXIETY [None]
  - GALLBLADDER NON-FUNCTIONING [None]
  - ORGAN FAILURE [None]
